FAERS Safety Report 8524597-5 (Version None)
Quarter: 2012Q3

REPORT INFORMATION
  Report Type: 
  Country: None (occurrence: None)
  Receive Date: 20120720
  Receipt Date: 20120711
  Transmission Date: 20120928
  Serious: No
  Sender: FDA-Public Use
  Company Number: US-BAYER-2012-069072

PATIENT
  Sex: Male

DRUGS (3)
  1. NEXAVAR [Suspect]
  2. VYTORIN [Concomitant]
  3. LANTUS [Concomitant]

REACTIONS (6)
  - TREMOR [None]
  - DIARRHOEA [None]
  - CHILLS [None]
  - FATIGUE [None]
  - FEELING COLD [None]
  - HYPERTENSION [None]
